FAERS Safety Report 14349585 (Version 1)
Quarter: 2018Q1

REPORT INFORMATION
  Report Type: Spontaneous
  Country: FR (occurrence: FR)
  Receive Date: 20180104
  Receipt Date: 20180104
  Transmission Date: 20180509
  Serious: Yes (Other)
  Sender: FDA-Public Use
  Company Number: FR-MERCK KGAA-2038357

PATIENT
  Age: 44 Year
  Sex: Female
  Weight: 58 kg

DRUGS (1)
  1. NOVOTHYROX [Suspect]
     Active Substance: LEVOTHYROXINE SODIUM
     Indication: THYROIDECTOMY
     Route: 048
     Dates: start: 2017, end: 2017

REACTIONS (16)
  - Angina pectoris [Not Recovered/Not Resolved]
  - Palpitations [Not Recovered/Not Resolved]
  - Fatigue [Not Recovered/Not Resolved]
  - Diffuse alopecia [Not Recovered/Not Resolved]
  - Depression [Not Recovered/Not Resolved]
  - Weight increased [Not Recovered/Not Resolved]
  - Menorrhagia [Not Recovered/Not Resolved]
  - Suicidal ideation [Not Recovered/Not Resolved]
  - Product formulation issue [Recovered/Resolved]
  - Vertigo [Not Recovered/Not Resolved]
  - Muscle spasms [Not Recovered/Not Resolved]
  - Arthralgia [Not Recovered/Not Resolved]
  - Blood pressure fluctuation [Not Recovered/Not Resolved]
  - Headache [Not Recovered/Not Resolved]
  - Hot flush [Not Recovered/Not Resolved]
  - Eye pain [Not Recovered/Not Resolved]

NARRATIVE: CASE EVENT DATE: 2017
